FAERS Safety Report 4308848-9 (Version None)
Quarter: 2004Q1

REPORT INFORMATION
  Report Type: 
  Country: None (occurrence: None)
  Receive Date: 20040301
  Receipt Date: 20040301
  Transmission Date: 20041129
  Serious: Yes (Life-Threatening, Hospitalization)
  Sender: FDA-Public Use
  Company Number: None

PATIENT
  Age: 56 Year
  Sex: Female
  Weight: 71.7 kg

DRUGS (10)
  1. DEXAMETHASONE [Suspect]
     Indication: METASTASES TO CENTRAL NERVOUS SYSTEM
     Dosage: 4 MG PO TID
     Route: 048
     Dates: end: 20040103
  2. TRAMADOL [Concomitant]
  3. COMPAZINE [Concomitant]
  4. ALBUTERAOL MD [Concomitant]
  5. PHENYTOIN [Concomitant]
  6. ZANTAC [Concomitant]
  7. MAXZIDE [Concomitant]
  8. CISPLATIN [Concomitant]
  9. VP-16 [Concomitant]
  10. RADIATION [Concomitant]

REACTIONS (9)
  - BLOOD GLUCOSE INCREASED [None]
  - CONFUSIONAL STATE [None]
  - DIZZINESS [None]
  - LETHARGY [None]
  - MARKEDLY REDUCED DIETARY INTAKE [None]
  - MENTAL STATUS CHANGES [None]
  - NEUTROPENIA [None]
  - POLLAKIURIA [None]
  - THIRST [None]
